FAERS Safety Report 13680187 (Version 4)
Quarter: 2017Q4

REPORT INFORMATION
  Report Type: Spontaneous
  Country: US (occurrence: US)
  Receive Date: 20170622
  Receipt Date: 20171025
  Transmission Date: 20180320
  Serious: Yes (Other)
  Sender: FDA-Public Use
  Company Number: US-ACTELION-A-NJ2017-155693

PATIENT
  Age: 77 Year
  Sex: Female

DRUGS (11)
  1. SPIRONOLACTONE. [Concomitant]
     Active Substance: SPIRONOLACTONE
  2. OMEPRAZOLE. [Concomitant]
     Active Substance: OMEPRAZOLE
  3. TRACLEER [Suspect]
     Active Substance: BOSENTAN
     Indication: PULMONARY ARTERIAL HYPERTENSION
     Dosage: 125 MG, UNK
     Route: 048
     Dates: start: 20170323
  4. ALENDRONATE [Concomitant]
     Active Substance: ALENDRONATE SODIUM
  5. HYDRALAZINE [Concomitant]
     Active Substance: HYDRALAZINE HYDROCHLORIDE
  6. LEVOTHYROXINE. [Concomitant]
     Active Substance: LEVOTHYROXINE
  7. KLOR-CON M20 [Concomitant]
     Active Substance: POTASSIUM CHLORIDE
  8. AMIODARONE [Concomitant]
     Active Substance: AMIODARONE
  9. BUMETANIDE. [Concomitant]
     Active Substance: BUMETANIDE
  10. LATANOPROST. [Concomitant]
     Active Substance: LATANOPROST
  11. DILTIAZEM CD [Concomitant]
     Active Substance: DILTIAZEM

REACTIONS (5)
  - Cystitis [Unknown]
  - Dental operation [Unknown]
  - Haemorrhage [Unknown]
  - Vocal cord paralysis [Unknown]
  - Arthritis [Unknown]

NARRATIVE: CASE EVENT DATE: 201710
